FAERS Safety Report 9917939 (Version 2)
Quarter: 2014Q4

REPORT INFORMATION
  Report Type: Report from Study
  Country: DE (occurrence: DE)
  Receive Date: 20140222
  Receipt Date: 20141010
  Transmission Date: 20150529
  Serious: Yes (Other)
  Sender: FDA-Public Use
  Company Number: DE-ROCHE-1353176

PATIENT
  Age: 77 Year
  Sex: Male
  Weight: 79 kg

DRUGS (12)
  1. BEVACIZUMAB [Suspect]
     Active Substance: BEVACIZUMAB
     Route: 042
     Dates: start: 20140108
  2. RAMIPRIL. [Concomitant]
     Active Substance: RAMIPRIL
     Indication: HYPERTENSION
     Route: 065
     Dates: start: 20120904, end: 20130528
  3. 5-FLUOROURACIL [Concomitant]
     Active Substance: FLUOROURACIL
     Dosage: DOSAGES BETWEEN 600MG AND 790MG
     Route: 041
     Dates: start: 20121105, end: 20140109
  4. CLEXANE [Concomitant]
     Active Substance: ENOXAPARIN SODIUM
     Route: 058
     Dates: start: 20121119
  5. BEVACIZUMAB [Suspect]
     Active Substance: BEVACIZUMAB
     Indication: COLORECTAL CANCER METASTATIC
     Dosage: =350MG
     Route: 042
     Dates: start: 20131106
  6. AMLODIPIN [Concomitant]
     Active Substance: AMLODIPINE BESYLATE
     Indication: HYPERTENSION
     Route: 065
     Dates: start: 20120904, end: 20130528
  7. IRINOTECAN [Suspect]
     Active Substance: IRINOTECAN
     Route: 065
     Dates: start: 20140108
  8. IRINOTECAN [Suspect]
     Active Substance: IRINOTECAN
     Indication: COLORECTAL CANCER METASTATIC
     Route: 065
     Dates: start: 20121105
  9. FOLINIC ACID [Concomitant]
     Active Substance: LEUCOVORIN
     Indication: COLORECTAL CANCER
     Dosage: DOSAGES BETWEEN 190MG AND 260MG
     Route: 065
     Dates: start: 20121105, end: 20140109
  10. OXALIPLATIN. [Concomitant]
     Active Substance: OXALIPLATIN
  11. 5-FLUOROURACIL [Concomitant]
     Active Substance: FLUOROURACIL
     Indication: COLORECTAL CANCER
     Dosage: DOSAGES BETWEEN 390-520MG
     Route: 040
     Dates: start: 20121105, end: 20140109
  12. TOREM [Concomitant]
     Active Substance: TORSEMIDE
     Route: 065
     Dates: start: 20120904, end: 20130528

REACTIONS (1)
  - Malignant neoplasm progression [Not Recovered/Not Resolved]

NARRATIVE: CASE EVENT DATE: 20140114
